FAERS Safety Report 7861245-1 (Version None)
Quarter: 2011Q4

REPORT INFORMATION
  Report Type: 
  Country: None (occurrence: None)
  Receive Date: 20111027
  Receipt Date: 20110826
  Transmission Date: 20120403
  Serious: Yes (Hospitalization, Other)
  Sender: FDA-Public Use
  Company Number: JP-ABBOTT-09P-087-0592255-00

PATIENT
  Sex: Female

DRUGS (8)
  1. PREDNISOLONE [Concomitant]
     Indication: RHEUMATOID ARTHRITIS
     Route: 048
     Dates: end: 20090817
  2. TIOPRONIN [Concomitant]
  3. CELECOXIB [Concomitant]
     Indication: RHEUMATOID ARTHRITIS
     Dates: end: 20090817
  4. CELECOXIB [Concomitant]
  5. TIOPRONIN [Concomitant]
     Indication: RHEUMATOID ARTHRITIS
     Dates: end: 20090817
  6. REBAMIPIDE [Concomitant]
     Indication: GASTRITIS PROPHYLAXIS
     Dates: end: 20090817
  7. PREDNISOLONE [Concomitant]
     Dosage: DAILY DOSE: 6MG
  8. HUMIRA [Suspect]
     Indication: RHEUMATOID ARTHRITIS
     Route: 058
     Dates: start: 20090715, end: 20090729

REACTIONS (3)
  - PNEUMONIA [None]
  - DIABETES MELLITUS [None]
  - TUBERCULOUS PLEURISY [None]
